FAERS Safety Report 20938753 (Version 2)
Quarter: 2022Q3

REPORT INFORMATION
  Report Type: Report from Study
  Country: US (occurrence: US)
  Receive Date: 20220609
  Receipt Date: 20220715
  Transmission Date: 20221026
  Serious: Yes (Other)
  Sender: FDA-Public Use
  Company Number: US-JAZZ-2022-US-018875

PATIENT
  Sex: Female

DRUGS (2)
  1. SOLRIAMFETOL [Suspect]
     Active Substance: SOLRIAMFETOL
     Indication: Product used for unknown indication
  2. FLUOXETINE [Concomitant]
     Active Substance: FLUOXETINE HYDROCHLORIDE
     Indication: Depression

REACTIONS (10)
  - Cardiac failure congestive [Unknown]
  - Disability [Unknown]
  - COVID-19 [Unknown]
  - Somnolence [Unknown]
  - Haemorrhoids [Unknown]
  - Weight increased [Unknown]
  - Hypoaesthesia [Unknown]
  - Illness [Unknown]
  - Muscle spasms [Unknown]
  - Insomnia [Unknown]

NARRATIVE: CASE EVENT DATE: 20200101
